FAERS Safety Report 25548349 (Version 1)
Quarter: 2025Q3

REPORT INFORMATION
  Report Type: Spontaneous
  Country: US (occurrence: US)
  Receive Date: 20250714
  Receipt Date: 20250714
  Transmission Date: 20251021
  Serious: No
  Sender: SANDOZ
  Company Number: US-SANDOZ-SDZ2025US047843

PATIENT
  Age: 32 Year
  Sex: Male

DRUGS (1)
  1. HYRIMOZ [Suspect]
     Active Substance: ADALIMUMAB-ADAZ
     Indication: Product used for unknown indication
     Dosage: ADALIMUMAB 40MG/0.4ML LISY (PREFILLED PEN)
     Route: 058

REACTIONS (2)
  - Incorrect dose administered [Unknown]
  - Device issue [Unknown]
